FAERS Safety Report 20789981 (Version 2)
Quarter: 2022Q2

REPORT INFORMATION
  Report Type: Spontaneous
  Country: CN (occurrence: CN)
  Receive Date: 20220505
  Receipt Date: 20220616
  Transmission Date: 20220721
  Serious: Yes (Other)
  Sender: FDA-Public Use
  Company Number: CN-GLAXOSMITHKLINE-CN2022APC072012

PATIENT

DRUGS (5)
  1. SERETIDE [Suspect]
     Active Substance: FLUTICASONE PROPIONATE\SALMETEROL XINAFOATE
     Indication: Asthma
     Dosage: UNK
     Route: 055
  2. SERETIDE [Suspect]
     Active Substance: FLUTICASONE PROPIONATE\SALMETEROL XINAFOATE
     Indication: Asthma
  3. AVELOX [Suspect]
     Active Substance: MOXIFLOXACIN HYDROCHLORIDE
     Indication: Asthma
     Dosage: 1 DF, QD
     Route: 048
     Dates: start: 2022, end: 2022
  4. AMINOPHYLLINE [Suspect]
     Active Substance: AMINOPHYLLINE
     Indication: Asthma
     Dosage: 2 DF, QD
     Route: 048
     Dates: start: 2022, end: 2022
  5. SPIRAMYCIN [Suspect]
     Active Substance: SPIRAMYCIN
     Indication: Asthma
     Dosage: 2 DF, QD
     Route: 048
     Dates: start: 2022, end: 2022

REACTIONS (14)
  - Pericardial effusion [Unknown]
  - Nasopharyngitis [Recovered/Resolved]
  - Sneezing [Unknown]
  - Rhinorrhoea [Unknown]
  - Rhinitis allergic [Recovered/Resolved]
  - Wheezing [Unknown]
  - Disease recurrence [Unknown]
  - Chest discomfort [Unknown]
  - Heart rate increased [Recovering/Resolving]
  - Tremor [Recovering/Resolving]
  - Blood pressure systolic increased [Unknown]
  - Drug ineffective for unapproved indication [Unknown]
  - Product use in unapproved indication [Unknown]
  - Inappropriate schedule of product administration [Unknown]

NARRATIVE: CASE EVENT DATE: 20220101
